FAERS Safety Report 6137691-3 (Version None)
Quarter: 2009Q1

REPORT INFORMATION
  Report Type: 
  Country: None (occurrence: None)
  Receive Date: 20090326
  Receipt Date: 20090120
  Transmission Date: 20090719
  Serious: Yes (Other)
  Sender: FDA-Public Use
  Company Number: 2009EU001058

PATIENT
  Age: 49 Year
  Sex: Male

DRUGS (6)
  1. PROGRAF [Suspect]
     Indication: LIVER TRANSPLANT
     Dosage: /D
  2. ATAZANAVIR SULFATE [Suspect]
     Indication: ANTIRETROVIRAL THERAPY
     Dosage: /D
     Dates: end: 20060801
  3. LAMIVUDINE [Concomitant]
  4. ABACAVIR (ABACAVI) [Concomitant]
  5. STAVUDINE [Concomitant]
  6. PREDNISONE TAB [Concomitant]

REACTIONS (9)
  - ANAEMIA [None]
  - BLOOD FIBRINOGEN INCREASED [None]
  - CONDITION AGGRAVATED [None]
  - DRUG INTERACTION [None]
  - DRUG LEVEL INCREASED [None]
  - METABOLIC ACIDOSIS [None]
  - NEPHROPATHY TOXIC [None]
  - RENAL FAILURE ACUTE [None]
  - SERUM FERRITIN INCREASED [None]
